FAERS Safety Report 12124658 (Version 1)
Quarter: 2016Q1

REPORT INFORMATION
  Report Type: Spontaneous
  Country: IN (occurrence: IN)
  Receive Date: 20160229
  Receipt Date: 20160229
  Transmission Date: 20160526
  Serious: Yes (Other)
  Sender: FDA-Public Use
  Company Number: IN-CIPLA LTD.-2016IN01534

PATIENT

DRUGS (9)
  1. RISNIA MD [Suspect]
     Active Substance: RISPERIDONE
     Dosage: 09 MG AT NIGHT
     Route: 065
  2. ATIVAN [Concomitant]
     Active Substance: LORAZEPAM
     Dosage: 1 MG, QD
     Route: 065
  3. PARKIN [Concomitant]
     Active Substance: ETHOPROPAZINE
     Dosage: 2 MG, QD
     Route: 065
  4. HUMINSULIN [Concomitant]
     Active Substance: INSULIN HUMAN
     Dosage: 15 MORNING, 20 NIGHT
     Route: 065
  5. ROSUVAS [Concomitant]
     Dosage: 10 MG, QD
     Route: 065
  6. GEMER [Concomitant]
     Dosage: 2 TID
     Route: 065
  7. NEXITO [Concomitant]
     Dosage: 20 MG, QD
     Route: 065
  8. RISNIA MD [Suspect]
     Active Substance: RISPERIDONE
     Dosage: 4 UNK, UNK
     Route: 065
  9. GLUFORMIN XL [Concomitant]
     Dosage: 1 G, BID
     Route: 065

REACTIONS (4)
  - Neuropathy peripheral [Recovered/Resolved]
  - Back pain [Recovered/Resolved]
  - Gait disturbance [Recovered/Resolved]
  - Product quality issue [None]
